FAERS Safety Report 23980071 (Version 1)
Quarter: 2024Q2

REPORT INFORMATION
  Report Type: Report from Study
  Country: CN (occurrence: CN)
  Receive Date: 20240617
  Receipt Date: 20240617
  Transmission Date: 20240716
  Serious: Yes (Hospitalization)
  Sender: FDA-Public Use
  Company Number: CN-BAXTER-2024BAX019599

PATIENT
  Age: 62 Year
  Sex: Male

DRUGS (72)
  1. CYCLOPHOSPHAMIDE [Suspect]
     Active Substance: CYCLOPHOSPHAMIDE
     Indication: Mantle cell lymphoma
     Dosage: 1267 MG, Q3W, AS A PART OF R-CHOP
     Route: 041
     Dates: start: 20240411, end: 20240411
  2. CYCLOPHOSPHAMIDE [Suspect]
     Active Substance: CYCLOPHOSPHAMIDE
     Dosage: 900 MG, Q3W, C2D1, AS A PART OF R-CHOP
     Route: 041
     Dates: start: 20240507, end: 20240507
  3. CYCLOPHOSPHAMIDE [Suspect]
     Active Substance: CYCLOPHOSPHAMIDE
     Dosage: 900 MG, Q3W, AS A PART OF R-CHOP
     Route: 041
     Dates: start: 20240528, end: 20240528
  4. RITUXIMAB [Suspect]
     Active Substance: RITUXIMAB
     Indication: Mantle cell lymphoma
     Dosage: 630 MG, Q3W, AS A PART OF R-CHOP
     Route: 041
     Dates: start: 20240410, end: 20240410
  5. RITUXIMAB [Suspect]
     Active Substance: RITUXIMAB
     Dosage: 630 MG, Q3W, AS A PART OF R-CHOP
     Route: 041
     Dates: start: 20240507, end: 20240507
  6. RITUXIMAB [Suspect]
     Active Substance: RITUXIMAB
     Dosage: 630 MG, Q3W, AS A PART OF R-CHOP
     Route: 041
     Dates: start: 20240528, end: 20240528
  7. DOXORUBICIN [Suspect]
     Active Substance: DOXORUBICIN
     Indication: Mantle cell lymphoma
     Dosage: 84 MG, Q3W, AS A PART OF R-CHOP
     Route: 041
     Dates: start: 20240411, end: 20240411
  8. DOXORUBICIN [Suspect]
     Active Substance: DOXORUBICIN
     Dosage: 60 MG, Q3W, AS A PART OF R-CHOP
     Route: 041
     Dates: start: 20240507, end: 20240507
  9. DOXORUBICIN [Suspect]
     Active Substance: DOXORUBICIN
     Dosage: 60 MG, Q3W, AS A PART OF R-CHOP
     Route: 041
     Dates: start: 20240528, end: 20240528
  10. VINCRISTINE [Suspect]
     Active Substance: VINCRISTINE
     Indication: Mantle cell lymphoma
     Dosage: 2 MG, Q3W, AS A PART OF R-CHOP
     Route: 041
     Dates: start: 20240411, end: 20240411
  11. VINCRISTINE [Suspect]
     Active Substance: VINCRISTINE
     Dosage: 2 MG, Q3W, AS A PART OF R-CHOP
     Route: 041
     Dates: start: 20240507, end: 20240507
  12. VINCRISTINE [Suspect]
     Active Substance: VINCRISTINE
     Dosage: 2 MG, Q3W, AS A PART OF R-CHOP
     Route: 041
     Dates: start: 20240528, end: 20240528
  13. PREDNISONE [Suspect]
     Active Substance: PREDNISONE
     Indication: Mantle cell lymphoma
     Dosage: 100 MG, QD, AS A PART OF R-CHOP
     Route: 048
     Dates: start: 20240410, end: 20240412
  14. PREDNISONE [Suspect]
     Active Substance: PREDNISONE
     Dosage: 100 MG, QD, AS A PART OF R-CHOP
     Route: 048
     Dates: start: 20240416, end: 20240417
  15. PREDNISONE [Suspect]
     Active Substance: PREDNISONE
     Dosage: 100 MG, QD, AS A PART OF R-CHOP
     Route: 048
     Dates: start: 20240507, end: 20240511
  16. PREDNISONE [Suspect]
     Active Substance: PREDNISONE
     Dosage: 100 MG, QD, AS A PART OF R-CHOP
     Route: 048
     Dates: start: 20240528, end: 20240601
  17. FERRIC POLYSACCHARIDE COMPLEX [Concomitant]
     Active Substance: FERRIC POLYSACCHARIDE COMPLEX
     Indication: Mineral supplementation
     Dosage: 0.15 G, QD
     Route: 048
     Dates: start: 20240316, end: 20240406
  18. FEBUXOSTAT [Concomitant]
     Active Substance: FEBUXOSTAT
     Indication: Prophylaxis
     Dosage: 40 MG, QD
     Route: 048
     Dates: start: 20240316, end: 20240401
  19. PREDNISONE ACETATE [Concomitant]
     Active Substance: PREDNISONE ACETATE
     Indication: Tumour treating fields therapy
     Dosage: 20 MG, BID
     Route: 048
     Dates: start: 20240328, end: 20240403
  20. ILAPRAZOLE [Concomitant]
     Active Substance: ILAPRAZOLE
     Indication: Prophylaxis
     Dosage: 10 MG, QD (ENTERIC-COATED TABLETS)
     Route: 048
     Dates: start: 20240328, end: 20240406
  21. ILAPRAZOLE [Concomitant]
     Active Substance: ILAPRAZOLE
     Dosage: 10 MG, QD (ENTERIC-COATED TABLETS)
     Route: 048
     Dates: start: 20240410, end: 20240410
  22. ILAPRAZOLE [Concomitant]
     Active Substance: ILAPRAZOLE
     Dosage: 10 MG, QD (ENTERIC-COATED TABLETS)
     Route: 048
     Dates: start: 20240507, end: 20240511
  23. ILAPRAZOLE [Concomitant]
     Active Substance: ILAPRAZOLE
     Dosage: 10 MG, QD (ENTERIC-COATED TABLETS)
     Route: 048
     Dates: start: 20240528, end: 20240528
  24. CEFUROXIME AXETIL [Concomitant]
     Active Substance: CEFUROXIME AXETIL
     Indication: Infection prophylaxis
     Dosage: 0.25 G, QD
     Route: 048
     Dates: start: 20240403, end: 20240405
  25. MOXIFLOXACIN [Concomitant]
     Active Substance: MOXIFLOXACIN
     Indication: Infection prophylaxis
     Dosage: 400 MG, QD
     Route: 048
     Dates: start: 20240403, end: 20240405
  26. MOXIFLOXACIN [Concomitant]
     Active Substance: MOXIFLOXACIN
     Dosage: 400 MG, QD
     Route: 048
     Dates: start: 20240418, end: 20240419
  27. HEPARIN SODIUM [Concomitant]
     Active Substance: HEPARIN SODIUM
     Indication: Hydrotubation
     Dosage: 12500 U, Q8H, ROUTE: H
     Route: 050
     Dates: start: 20240403, end: 20240403
  28. RABEPRAZOLE SODIUM [Concomitant]
     Active Substance: RABEPRAZOLE SODIUM
     Indication: Prophylaxis
     Dosage: 20 MG, QD
     Route: 041
     Dates: start: 20240404, end: 20240406
  29. RABEPRAZOLE SODIUM [Concomitant]
     Active Substance: RABEPRAZOLE SODIUM
     Dosage: 40 MG, QD
     Route: 041
     Dates: start: 20240507, end: 20240507
  30. DEXAMETHASONE SODIUM PHOSPHATE [Concomitant]
     Active Substance: DEXAMETHASONE PHOSPHATE\DEXAMETHASONE SODIUM PHOSPHATE
     Indication: Neoplasm
     Dosage: 10 MG, QD
     Route: 041
     Dates: start: 20240404, end: 20240406
  31. DEXAMETHASONE SODIUM PHOSPHATE [Concomitant]
     Active Substance: DEXAMETHASONE PHOSPHATE\DEXAMETHASONE SODIUM PHOSPHATE
     Indication: Prophylaxis
     Dosage: 10 MG, QD
     Route: 041
     Dates: start: 20240507, end: 20240507
  32. DEXAMETHASONE SODIUM PHOSPHATE [Concomitant]
     Active Substance: DEXAMETHASONE PHOSPHATE\DEXAMETHASONE SODIUM PHOSPHATE
     Indication: Mouth ulceration
     Dosage: APPROPRIATE AMOUNT, QD, ROUTE: GARGLE
     Route: 050
     Dates: start: 20240511, end: 20240517
  33. DEXAMETHASONE SODIUM PHOSPHATE [Concomitant]
     Active Substance: DEXAMETHASONE PHOSPHATE\DEXAMETHASONE SODIUM PHOSPHATE
     Dosage: 10 MG, QD
     Route: 041
     Dates: start: 20240528, end: 20240528
  34. DEXTROSE\SODIUM CHLORIDE [Concomitant]
     Active Substance: DEXTROSE\SODIUM CHLORIDE
     Indication: Hydrotherapy
     Dosage: 500 ML, QD, SOLUTION
     Route: 041
     Dates: start: 20240404, end: 20240406
  35. DEXTROSE\SODIUM CHLORIDE [Concomitant]
     Active Substance: DEXTROSE\SODIUM CHLORIDE
     Dosage: 1000 ML, QD, SOLUTION
     Route: 041
     Dates: start: 20240409, end: 20240412
  36. SODIUM BICARBONATE [Concomitant]
     Active Substance: SODIUM BICARBONATE
     Indication: Hydrotherapy
     Dosage: 1 G, TID
     Route: 048
     Dates: start: 20240404, end: 20240406
  37. SODIUM BICARBONATE [Concomitant]
     Active Substance: SODIUM BICARBONATE
     Dosage: 2 G, TID
     Route: 048
     Dates: start: 20240409, end: 20240412
  38. ILAPRAZOLE [Concomitant]
     Active Substance: ILAPRAZOLE
     Indication: Prophylaxis
     Dosage: 10 MG, QD
     Route: 041
     Dates: start: 20240410, end: 20240410
  39. ILAPRAZOLE [Concomitant]
     Active Substance: ILAPRAZOLE
     Dosage: 10 MG, QD
     Route: 041
     Dates: start: 20240528, end: 20240528
  40. DIPHENHYDRAMINE HYDROCHLORIDE [Concomitant]
     Active Substance: DIPHENHYDRAMINE HYDROCHLORIDE
     Indication: Prophylaxis
     Dosage: 20 MG, QD
     Route: 030
     Dates: start: 20240410, end: 20240410
  41. DIPHENHYDRAMINE HYDROCHLORIDE [Concomitant]
     Active Substance: DIPHENHYDRAMINE HYDROCHLORIDE
     Dosage: 20 MG, QD
     Route: 030
     Dates: start: 20240507, end: 20240507
  42. DIPHENHYDRAMINE HYDROCHLORIDE [Concomitant]
     Active Substance: DIPHENHYDRAMINE HYDROCHLORIDE
     Dosage: 20 MG, QD
     Route: 030
     Dates: start: 20240528, end: 20240528
  43. ACETAMINOPHEN\CAFFEINE [Concomitant]
     Active Substance: ACETAMINOPHEN\CAFFEINE
     Indication: Prophylaxis
     Dosage: 565 MG, QD
     Route: 048
     Dates: start: 20240410, end: 20240410
  44. ACETAMINOPHEN\CAFFEINE [Concomitant]
     Active Substance: ACETAMINOPHEN\CAFFEINE
     Dosage: 565 MG, QD
     Route: 048
     Dates: start: 20240507, end: 20240507
  45. ACETAMINOPHEN\CAFFEINE [Concomitant]
     Active Substance: ACETAMINOPHEN\CAFFEINE
     Dosage: 565 MG, QD
     Route: 048
     Dates: start: 20240528, end: 20240528
  46. CIMETIDINE [Concomitant]
     Active Substance: CIMETIDINE
     Indication: Prophylaxis
     Dosage: 0.40 G, QD
     Route: 041
     Dates: start: 20240410, end: 20240410
  47. CIMETIDINE [Concomitant]
     Active Substance: CIMETIDINE
     Dosage: 0.40 G, QD
     Route: 041
     Dates: start: 20240507, end: 20240507
  48. CIMETIDINE [Concomitant]
     Active Substance: CIMETIDINE
     Dosage: 0.40 G, QD
     Route: 041
     Dates: start: 20240528, end: 20240528
  49. ALBUMIN HUMAN [Concomitant]
     Active Substance: ALBUMIN HUMAN
     Indication: Hypoalbuminaemia
     Dosage: 10 G, QD
     Route: 041
     Dates: start: 20240410, end: 20240410
  50. PALONOSETRON HYDROCHLORIDE [Concomitant]
     Active Substance: PALONOSETRON HYDROCHLORIDE
     Indication: Prophylaxis
     Dosage: 0.50 MG, QD
     Route: 042
     Dates: start: 20240411, end: 20240411
  51. PALONOSETRON HYDROCHLORIDE [Concomitant]
     Active Substance: PALONOSETRON HYDROCHLORIDE
     Dosage: 0.25 MG, QD
     Route: 042
     Dates: start: 20240507, end: 20240507
  52. PALONOSETRON HYDROCHLORIDE [Concomitant]
     Active Substance: PALONOSETRON HYDROCHLORIDE
     Dosage: 0.25 MG, QD
     Route: 042
     Dates: start: 20240507, end: 20240507
  53. ANF-RHO [Concomitant]
     Active Substance: ANF-RHO
     Indication: White blood cell count decreased
     Dosage: 6 MG, ONCE, ROUTE: H
     Route: 050
     Dates: start: 20240412, end: 20240412
  54. ANF-RHO [Concomitant]
     Active Substance: ANF-RHO
     Dosage: 6MG, 24H TO 48H AFTER CHEMOTHERAPY, ROUTE: H
     Route: 050
     Dates: start: 20240509, end: 20240509
  55. CALCIUM GLUCONATE [Concomitant]
     Active Substance: CALCIUM GLUCONATE
     Indication: Hypocalcaemia
     Dosage: 1 G, QD
     Route: 042
     Dates: start: 20240412, end: 20240412
  56. BENZBROMARONE [Concomitant]
     Active Substance: BENZBROMARONE
     Indication: Prophylaxis
     Dosage: 50 MG, QD
     Route: 048
     Dates: start: 20240408, end: 20240410
  57. CETYLPYRIDINIUM CHLORIDE [Concomitant]
     Active Substance: CETYLPYRIDINIUM CHLORIDE
     Indication: Prophylaxis
     Dosage: UNK, APPROPRIATE AMOUNT BID, ROUTE: MOUTHWASH
     Route: 050
     Dates: start: 20240416, end: 20240427
  58. CETYLPYRIDINIUM CHLORIDE [Concomitant]
     Active Substance: CETYLPYRIDINIUM CHLORIDE
     Indication: Mouth ulceration
     Dosage: UNK, APPROPRIATE AMOUNT BID, ROUTE: MOUTHWASH
     Route: 050
     Dates: start: 20240428, end: 20240505
  59. INSULIN NOS [Concomitant]
     Active Substance: INSULIN NOS
     Indication: Hypoglycaemia
     Dosage: 4 UNITS, QD, ROUTE: H
     Route: 050
     Dates: start: 20240410, end: 20240410
  60. SULFAMETHOXAZOLE [Concomitant]
     Active Substance: SULFAMETHOXAZOLE
     Indication: Prophylaxis
     Dosage: 0.96G, TWICE A WEEK
     Route: 048
     Dates: start: 20240412, end: 20240419
  61. SULFAMETHOXAZOLE [Concomitant]
     Active Substance: SULFAMETHOXAZOLE
     Indication: Prophylaxis
     Dosage: 0.96G, TWICE A WEEK, STOP DATE: LAST
     Route: 048
     Dates: start: 20240510
  62. GRANULOCYTE COLONY-STIMULATING FACTOR NOS [Concomitant]
     Active Substance: GRANULOCYTE COLONY-STIMULATING FACTOR NOS
     Indication: Neutrophil count decreased
     Dosage: 300 UG, QD, ROUTE: H
     Route: 050
     Dates: start: 20240418, end: 20240418
  63. LIDOCAINE [Concomitant]
     Active Substance: LIDOCAINE
     Indication: Local anaesthesia
     Dosage: 0.2 G, QD, ROUTE: H
     Route: 050
     Dates: start: 20240403, end: 20240403
  64. Combined bifidobacterium, lactobacillus, enterococcus and bacillus cer [Concomitant]
     Indication: Constipation
     Dosage: 1.5 G, TID
     Route: 048
     Dates: start: 20240511, end: 20240512
  65. Combined bifidobacterium, lactobacillus, enterococcus and bacillus cer [Concomitant]
     Indication: Prophylaxis
     Dosage: 1.5 G, TID
     Route: 048
     Dates: start: 20240513, end: 20240517
  66. LACTULOSE [Concomitant]
     Active Substance: LACTULOSE
     Indication: Constipation
     Dosage: 15 ML, BID, SOLUTION
     Route: 048
     Dates: start: 20240511, end: 20240512
  67. LACTULOSE [Concomitant]
     Active Substance: LACTULOSE
     Indication: Prophylaxis
     Dosage: 15 ML, BID, SOLUTION
     Route: 048
     Dates: start: 20240513, end: 20240513
  68. ENEMA (SODIUM PHOSPHATE, DIBASIC\SODIUM PHOSPHATE, MONOBASIC) [Concomitant]
     Active Substance: SODIUM PHOSPHATE, DIBASIC\SODIUM PHOSPHATE, MONOBASIC
     Indication: Constipation
     Dosage: 20 M, QD
     Route: 061
     Dates: start: 20240511, end: 20240511
  69. COMPOUND VITAMIN B12 [Concomitant]
     Indication: Mouth ulceration
     Dosage: UNK, APPROPRIATE AMOUNT, QD, SOLUTION, ROUTE: GARGLE
     Route: 050
     Dates: start: 20240511
  70. GENTAMICIN [Concomitant]
     Active Substance: GENTAMICIN
     Indication: Mouth ulceration
     Dosage: APPROPRIATE AMOUNT, QD, ROUTE: GARGLE
     Route: 050
     Dates: start: 20240511, end: 20240517
  71. Vitamins with Minerals Tablets (29) [Concomitant]
     Indication: Vitamin supplementation
     Dosage: 1 TABLET, QD. STOP DATE: LAST
     Route: 048
     Dates: start: 20240516
  72. MEDROXYPROGESTERONE [Concomitant]
     Active Substance: MEDROXYPROGESTERONE
     Indication: Decreased appetite
     Dosage: 0.5 G, QD
     Route: 048
     Dates: start: 20240418, end: 20240420

REACTIONS (1)
  - Pancreatic enzymes increased [Recovered/Resolved]

NARRATIVE: CASE EVENT DATE: 20240420
